FAERS Safety Report 17734409 (Version 2)
Quarter: 2020Q2

REPORT INFORMATION
  Report Type: Spontaneous
  Country: US (occurrence: US)
  Receive Date: 20200501
  Receipt Date: 20200505
  Transmission Date: 20200714
  Serious: No
  Sender: FDA-Public Use
  Company Number: US-PFIZER INC-2020157129

PATIENT
  Age: 79 Year

DRUGS (1)
  1. PREMARIN [Suspect]
     Active Substance: ESTROGENS, CONJUGATED
     Dosage: 0.3 MG, UNK

REACTIONS (5)
  - Hypersensitivity [Unknown]
  - Sciatic nerve neuropathy [Unknown]
  - Frustration tolerance decreased [Unknown]
  - Malaise [Unknown]
  - Back disorder [Unknown]
